FAERS Safety Report 7243519-0 (Version None)
Quarter: 2011Q1

REPORT INFORMATION
  Report Type: 
  Country: None (occurrence: None)
  Receive Date: 20110125
  Receipt Date: 20110118
  Transmission Date: 20110831
  Serious: Yes (Other)
  Sender: FDA-Public Use
  Company Number: US-JNJFOC-20110105749

PATIENT
  Age: 18 Year
  Sex: Female
  Weight: 78.02 kg

DRUGS (1)
  1. EXTRA STRENGTH TYLENOL PM [Suspect]
     Indication: INSOMNIA
     Dosage: 4 CAPLETS
     Route: 048

REACTIONS (3)
  - INTENTIONAL OVERDOSE [None]
  - HYPOTENSION [None]
  - BLOOD POTASSIUM DECREASED [None]
